FAERS Safety Report 19193705 (Version 1)
Quarter: 2021Q2

REPORT INFORMATION
  Report Type: Spontaneous
  Country: IT (occurrence: IT)
  Receive Date: 20210429
  Receipt Date: 20210429
  Transmission Date: 20210717
  Serious: Yes (Other)
  Sender: FDA-Public Use
  Company Number: NVSC2021IT088881

PATIENT
  Age: 64 Year
  Sex: Female
  Weight: 55 kg

DRUGS (1)
  1. AFINITOR [Suspect]
     Active Substance: EVEROLIMUS
     Indication: BREAST CANCER
     Dosage: 10 MG, QD
     Route: 048
     Dates: start: 20201102, end: 20201218

REACTIONS (4)
  - Asthenia [Recovering/Resolving]
  - Oral pain [Recovering/Resolving]
  - Headache [Recovering/Resolving]
  - Aphthous ulcer [Recovering/Resolving]

NARRATIVE: CASE EVENT DATE: 20201213
